FAERS Safety Report 23638730 (Version 1)
Quarter: 2024Q1

REPORT INFORMATION
  Report Type: Spontaneous
  Country: AU (occurrence: AU)
  Receive Date: 20240315
  Receipt Date: 20240315
  Transmission Date: 20240410
  Serious: Yes (Other)
  Sender: FDA-Public Use
  Company Number: AU-MYLANLABS-2024M1021852

PATIENT
  Age: 73 Year
  Sex: Male

DRUGS (1)
  1. DYMISTA [Suspect]
     Active Substance: AZELASTINE HYDROCHLORIDE\FLUTICASONE PROPIONATE
     Indication: Product used for unknown indication
     Dosage: UNK
     Route: 045

REACTIONS (8)
  - Tunnel vision [Unknown]
  - Migraine [Unknown]
  - Disorientation [Unknown]
  - Memory impairment [Unknown]
  - Patient dissatisfaction with treatment [Unknown]
  - Headache [Unknown]
  - Dizziness [Unknown]
  - Dysgeusia [Unknown]
